FAERS Safety Report 20054763 (Version 1)
Quarter: 2021Q4

REPORT INFORMATION
  Report Type: Spontaneous
  Country: US (occurrence: None)
  Receive Date: 20211110
  Receipt Date: 20211110
  Transmission Date: 20220303
  Serious: Yes (Hospitalization)
  Sender: FDA-Public Use
  Company Number: None

PATIENT
  Age: 67 Year
  Sex: Male
  Weight: 72 kg

DRUGS (2)
  1. CARBOPLATIN [Suspect]
     Active Substance: CARBOPLATIN
     Dates: end: 20211027
  2. TAXOL [Suspect]
     Active Substance: PACLITAXEL
     Dates: end: 20211027

REACTIONS (5)
  - Presyncope [None]
  - Neutrophil count decreased [None]
  - Dyspnoea [None]
  - Pulmonary mass [None]
  - Disease progression [None]

NARRATIVE: CASE EVENT DATE: 20211031
